FAERS Safety Report 12487735 (Version 3)
Quarter: 2021Q4

REPORT INFORMATION
  Report Type: Spontaneous
  Country: US (occurrence: US)
  Receive Date: 20160622
  Receipt Date: 20211109
  Transmission Date: 20220304
  Serious: Yes (Other)
  Sender: FDA-Public Use
  Company Number: US-AUROBINDO-AUR-APL-2016-08166

PATIENT
  Age: 25 Year
  Sex: Male

DRUGS (1)
  1. LOPERAMIDE [Suspect]
     Active Substance: LOPERAMIDE
     Indication: Euphoric mood
     Dosage: 300 MILLIGRAM,DELIBERATELY INGESTED 300 MG OF LOPERAMIDE
     Route: 048

REACTIONS (6)
  - Arrhythmia [Recovered/Resolved]
  - Electrocardiogram QRS complex prolonged [Recovered/Resolved]
  - Electrocardiogram QT prolonged [Recovered/Resolved]
  - Palpitations [Recovered/Resolved]
  - Mental status changes [Recovered/Resolved]
  - Intentional overdose [Recovered/Resolved]
